FAERS Safety Report 9641703 (Version 3)
Quarter: 2014Q1

REPORT INFORMATION
  Report Type: Not Available
  Country: US (occurrence: US)
  Receive Date: 20131023
  Receipt Date: 20140227
  Transmission Date: 20141002
  Serious: Yes (Hospitalization)
  Sender: FDA-Public Use
  Company Number: US-VIROPHARMA INCORPORATED-20131010CINRY5148

PATIENT
  Age: 32 Year
  Sex: Female
  Weight: 102 kg

DRUGS (8)
  1. CINRYZE (C1 ESTERASE INHIBITOR (HUMAN)) [Suspect]
     Indication: HEREDITARY ANGIOEDEMA
     Route: 042
     Dates: start: 20130205
  2. CINRYZE (C1 ESTERASE INHIBITOR (HUMAN)) [Suspect]
     Indication: PROPHYLAXIS
  3. PROGESTERONE [Concomitant]
     Indication: PRODUCT USED FOR UNKNOWN INDICATION
     Route: 030
  4. BENADRYL [Concomitant]
     Indication: PRURITUS
     Route: 048
  5. ZOFRAN [Concomitant]
     Indication: NAUSEA
     Route: 048
  6. PRENATAL MULTIVITAMINS [Concomitant]
     Indication: PREGNANCY
     Route: 048
     Dates: start: 20130520
  7. EPIPEN [Concomitant]
     Indication: PRODUCT USED FOR UNKNOWN INDICATION
     Dosage: UNKNOWN
     Route: 065
  8. BERINERT [Concomitant]
     Indication: HEREDITARY ANGIOEDEMA
     Route: 042
     Dates: start: 201302

REACTIONS (4)
  - Pyelonephritis [Recovered/Resolved]
  - Klebsiella infection [Recovered/Resolved]
  - Exposure during pregnancy [Recovered/Resolved]
  - Hereditary angioedema [Recovered/Resolved]
